FAERS Safety Report 9470212 (Version 1)
Quarter: 2013Q3

REPORT INFORMATION
  Report Type: Spontaneous
  Country: ZA (occurrence: ZA)
  Receive Date: 20130822
  Receipt Date: 20130822
  Transmission Date: 20140515
  Serious: Yes (Hospitalization)
  Sender: FDA-Public Use
  Company Number: ZA-AMGEN-ZAFSP2013058630

PATIENT
  Age: 8 Year
  Sex: Male

DRUGS (3)
  1. ENBREL [Suspect]
     Indication: JUVENILE IDIOPATHIC ARTHRITIS
     Dosage: 25 MG, WEEKLY
     Route: 058
     Dates: start: 201205, end: 20130726
  2. METHOTREXATE [Concomitant]
     Dosage: ONE (UNSPECIFED) WEEKLY
     Route: 048
  3. DICLOFENAC [Concomitant]
     Dosage: UNK, WEEKLY
     Route: 030

REACTIONS (5)
  - Joint swelling [Not Recovered/Not Resolved]
  - Abasia [Not Recovered/Not Resolved]
  - Arthralgia [Recovered/Resolved]
  - Weight decreased [Recovered/Resolved]
  - Night sweats [Recovered/Resolved]
